FAERS Safety Report 17530469 (Version 5)
Quarter: 2020Q2

REPORT INFORMATION
  Report Type: Spontaneous
  Country: PL (occurrence: PL)
  Receive Date: 20200312
  Receipt Date: 20200629
  Transmission Date: 20200713
  Serious: Yes (Hospitalization, Other)
  Sender: FDA-Public Use
  Company Number: NVSC2020PL068457

PATIENT
  Age: 45 Year
  Sex: Female

DRUGS (20)
  1. LITHIUM CARBONICUM [Suspect]
     Active Substance: LITHIUM CARBONATE
     Indication: SCHIZOAFFECTIVE DISORDER
  2. LAMOTRIGINE. [Concomitant]
     Active Substance: LAMOTRIGINE
     Indication: BIPOLAR DISORDER
     Dosage: 125 MG, QD
     Route: 065
  3. ARIPIPRAZOLE. [Suspect]
     Active Substance: ARIPIPRAZOLE
     Indication: BIPOLAR DISORDER
     Dosage: 15 MG, QD
     Route: 065
  4. LAMOTRIGINE. [Concomitant]
     Active Substance: LAMOTRIGINE
     Indication: SCHIZOAFFECTIVE DISORDER
     Dosage: UP TO 200 MG/DAY   `
     Route: 065
  5. VENLAFAXINE [Suspect]
     Active Substance: VENLAFAXINE HYDROCHLORIDE
     Indication: SCHIZOAFFECTIVE DISORDER
  6. AMISULPRIDE [Suspect]
     Active Substance: AMISULPRIDE
     Indication: BIPOLAR DISORDER
     Dosage: 400 MG, QD
     Route: 065
  7. LITHIUM CARBONICUM [Suspect]
     Active Substance: LITHIUM CARBONATE
     Indication: BIPOLAR DISORDER
     Dosage: 1000 MG, QD
     Route: 065
  8. HALOPERIDOL. [Suspect]
     Active Substance: HALOPERIDOL
     Indication: PRODUCT USED FOR UNKNOWN INDICATION
     Dosage: 2 MG, QD
     Route: 065
  9. CLOZAPINE. [Suspect]
     Active Substance: CLOZAPINE
     Indication: BIPOLAR DISORDER
     Dosage: 400 MG, QD
     Route: 065
  10. ARIPIPRAZOLE. [Suspect]
     Active Substance: ARIPIPRAZOLE
     Indication: SCHIZOAFFECTIVE DISORDER
     Dosage: 10 MG, QD
     Route: 065
  11. OLANZAPINE. [Suspect]
     Active Substance: OLANZAPINE
     Indication: PRODUCT USED FOR UNKNOWN INDICATION
     Dosage: UNK
     Route: 065
  12. VENLAFAXINE [Suspect]
     Active Substance: VENLAFAXINE HYDROCHLORIDE
     Indication: ANTIDEPRESSANT THERAPY
     Dosage: 150 MG, QD
     Route: 065
  13. AMISULPRIDE [Suspect]
     Active Substance: AMISULPRIDE
     Indication: SCHIZOAFFECTIVE DISORDER
  14. QUETIAPINE. [Suspect]
     Active Substance: QUETIAPINE
     Indication: SCHIZOAFFECTIVE DISORDER
     Dosage: 600 MG, QD(PROLONGED-RELEASE QUETIAPINE)
     Route: 065
  15. SERTRALINE [Suspect]
     Active Substance: SERTRALINE HYDROCHLORIDE
     Indication: BIPOLAR DISORDER
  16. CLOZAPINE. [Suspect]
     Active Substance: CLOZAPINE
     Indication: SCHIZOAFFECTIVE DISORDER
  17. QUETIAPINE. [Suspect]
     Active Substance: QUETIAPINE
     Indication: BIPOLAR DISORDER
     Dosage: 325 MG, QD
     Route: 065
  18. SERTRALINE [Suspect]
     Active Substance: SERTRALINE HYDROCHLORIDE
     Indication: SCHIZOAFFECTIVE DISORDER
     Dosage: 100 MG, QD
     Route: 065
  19. VENLAFAXINE [Suspect]
     Active Substance: VENLAFAXINE HYDROCHLORIDE
     Indication: BIPOLAR DISORDER
  20. AMITRIPTYLINE [Suspect]
     Active Substance: AMITRIPTYLINE
     Indication: PRODUCT USED FOR UNKNOWN INDICATION
     Dosage: 20 MG, QD
     Route: 065

REACTIONS (25)
  - Delusion [Recovered/Resolved]
  - Hallucination [Recovered/Resolved]
  - Depressed mood [Recovered/Resolved]
  - Dystonia [Unknown]
  - Condition aggravated [Unknown]
  - Sleep disorder [Recovered/Resolved]
  - Euphoric mood [Unknown]
  - Decreased appetite [Recovered/Resolved]
  - Urinary incontinence [Unknown]
  - Drug hypersensitivity [Recovered/Resolved]
  - Peripheral swelling [Unknown]
  - Akathisia [Unknown]
  - Drug ineffective [Unknown]
  - Mental impairment [Recovered/Resolved]
  - Hallucination, auditory [Recovered/Resolved]
  - Depressive symptom [Recovered/Resolved]
  - Tremor [Unknown]
  - Hallucination, olfactory [Recovered/Resolved]
  - Negative thoughts [Recovered/Resolved]
  - Hyperhidrosis [Recovered/Resolved]
  - Somatic symptom disorder of pregnancy [Recovered/Resolved]
  - Musculoskeletal stiffness [Unknown]
  - Extrapyramidal disorder [Unknown]
  - Fall [Unknown]
  - Gait disturbance [Unknown]
